FAERS Safety Report 19525031 (Version 1)
Quarter: 2021Q3

REPORT INFORMATION
  Report Type: Spontaneous
  Country: CA (occurrence: CA)
  Receive Date: 20210712
  Receipt Date: 20210712
  Transmission Date: 20211014
  Serious: Yes (Other)
  Sender: FDA-Public Use
  Company Number: CA-JNJFOC-20210714883

PATIENT
  Age: 37 Year
  Sex: Male

DRUGS (5)
  1. PURINETHOL [Suspect]
     Active Substance: MERCAPTOPURINE
  2. ADALIMUMAB [Suspect]
     Active Substance: ADALIMUMAB
  3. METHOTREXATE. [Suspect]
     Active Substance: METHOTREXATE
     Dosage: 1.0
  4. STELARA [Suspect]
     Active Substance: USTEKINUMAB
     Indication: PRODUCT USED FOR UNKNOWN INDICATION
     Route: 058
  5. PREDNISONE. [Suspect]
     Active Substance: PREDNISONE

REACTIONS (6)
  - Duodenal ulcer [Unknown]
  - Weight decreased [Unknown]
  - Treatment failure [Unknown]
  - Off label use [Unknown]
  - Intestinal stenosis [Unknown]
  - C-reactive protein increased [Unknown]
